FAERS Safety Report 25994383 (Version 2)
Quarter: 2025Q4

REPORT INFORMATION
  Report Type: Report from Study
  Country: EU (occurrence: EU)
  Receive Date: 20251104
  Receipt Date: 20251221
  Transmission Date: 20260118
  Serious: Yes (Hospitalization, Other)
  Sender: ABBVIE
  Company Number: EU-ABBVIE-6525255

PATIENT
  Age: 68 Year
  Sex: Male
  Weight: 76 kg

DRUGS (4)
  1. FOSCARBIDOPA\FOSLEVODOPA [Suspect]
     Active Substance: FOSCARBIDOPA\FOSLEVODOPA
     Indication: Parkinson^s disease
     Dosage: DOSAGE: LD: 1.2ML, CR: LOW: 0.42ML/H, BASE: 0.48ML/H, HIGH: 0.52ML/H, ED: 0.30ML
     Route: 058
     Dates: start: 20250711, end: 2025
  2. FOSCARBIDOPA\FOSLEVODOPA [Suspect]
     Active Substance: FOSCARBIDOPA\FOSLEVODOPA
     Dosage: DOSAGE: LD: 1.2ML, CR: LOW: 0.42ML/H, BASE: 0.52ML/H, HIGH: 0.58ML/H, ED: 0.30ML
     Route: 058
     Dates: start: 2025, end: 2025
  3. FOSCARBIDOPA\FOSLEVODOPA [Suspect]
     Active Substance: FOSCARBIDOPA\FOSLEVODOPA
     Dosage: DOSAGE: LD: 1.2ML CR: LOW: 0.46ML/H BASE: 0.58ML/H HIGH: 0.62ML/H ED: 0.30ML
     Route: 058
     Dates: start: 202511
  4. FOSCARBIDOPA\FOSLEVODOPA [Suspect]
     Active Substance: FOSCARBIDOPA\FOSLEVODOPA
     Dosage: DOSAGE: BASE 0.52 ML/H, HIGH 0.58 ML/H, LOW 0.45 ML/H.
     Route: 058
     Dates: start: 2025, end: 2025

REACTIONS (8)
  - Respiratory tract infection [Recovered/Resolved]
  - Cholecystitis acute [Recovered/Resolved]
  - Pneumonia [Recovered/Resolved]
  - Asthenia [Not Recovered/Not Resolved]
  - Dysphonia [Not Recovered/Not Resolved]
  - Freezing phenomenon [Not Recovered/Not Resolved]
  - Musculoskeletal stiffness [Not Recovered/Not Resolved]
  - Therapeutic product effect incomplete [Unknown]

NARRATIVE: CASE EVENT DATE: 20250101
